FAERS Safety Report 10205309 (Version 1)
Quarter: 2014Q2

REPORT INFORMATION
  Report Type: Spontaneous
  Country: US (occurrence: US)
  Receive Date: 20140529
  Receipt Date: 20140529
  Transmission Date: 20141212
  Serious: No
  Sender: FDA-Public Use
  Company Number: US-SA-2014SA039286

PATIENT
  Sex: Male

DRUGS (1)
  1. LANTUS [Suspect]
     Indication: PRODUCT USED FOR UNKNOWN INDICATION
     Dosage: DOSE:28 UNIT(S)
     Route: 058
     Dates: start: 20140301

REACTIONS (4)
  - Blood glucose increased [Unknown]
  - Ill-defined disorder [Unknown]
  - Product quality issue [Unknown]
  - Product odour abnormal [Unknown]
